FAERS Safety Report 7644024-X (Version None)
Quarter: 2011Q3

REPORT INFORMATION
  Report Type: 
  Country: None (occurrence: None)
  Receive Date: 20110729
  Receipt Date: 20110726
  Transmission Date: 20111222
  Serious: Yes (Other)
  Sender: FDA-Public Use
  Company Number: GB-PFIZER INC-2011170554

PATIENT
  Age: 56 Year
  Sex: Female

DRUGS (3)
  1. LYRICA [Suspect]
     Indication: NEURALGIA
     Dosage: 200 MG, 2X/DAY
  2. WARFARIN [Interacting]
     Indication: PULMONARY EMBOLISM
     Dosage: UNK
     Route: 048
  3. LYRICA [Interacting]
     Dosage: 300 MG, 2X/DAY
     Route: 048
     Dates: start: 20100901, end: 20101201

REACTIONS (2)
  - DRUG INTERACTION [None]
  - INTERNATIONAL NORMALISED RATIO DECREASED [None]
